FAERS Safety Report 24219396 (Version 7)
Quarter: 2025Q1

REPORT INFORMATION
  Report Type: Report from Study
  Country: KR (occurrence: KR)
  Receive Date: 20240816
  Receipt Date: 20250116
  Transmission Date: 20250409
  Serious: Yes (Hospitalization)
  Sender: ABBVIE
  Company Number: KR-PFIZER INC-PV202400104767

PATIENT
  Age: 57 Year
  Sex: Male
  Weight: 55 kg

DRUGS (17)
  1. AVIBACTAM SODIUM\CEFTAZIDIME [Suspect]
     Active Substance: AVIBACTAM SODIUM\CEFTAZIDIME
     Indication: Abdominal infection
     Route: 042
     Dates: start: 20240711, end: 20240727
  2. AMOCLAN DUO [Concomitant]
     Indication: Infection
     Route: 048
     Dates: start: 20240727, end: 20240808
  3. ORNITHINE ASPARTATE [Concomitant]
     Active Substance: ORNITHINE ASPARTATE
     Indication: Viral hepatitis carrier
     Route: 042
     Dates: start: 20240614, end: 20240726
  4. DIABEX [Concomitant]
     Active Substance: METFORMIN HYDROCHLORIDE
     Indication: Diabetes mellitus
     Route: 048
     Dates: start: 20240710
  5. AVELOX [Concomitant]
     Active Substance: MOXIFLOXACIN HYDROCHLORIDE
     Indication: Infection
     Route: 048
     Dates: start: 20240727, end: 20240808
  6. PROPRANOLOL HYDROCHLORIDE [Concomitant]
     Active Substance: PROPRANOLOL HYDROCHLORIDE
     Indication: Hypertension
     Route: 048
     Dates: start: 20240715, end: 20240727
  7. URSODIOL [Concomitant]
     Active Substance: URSODIOL
     Indication: Viral hepatitis carrier
     Route: 048
     Dates: start: 20240709
  8. TEICONIN [Concomitant]
     Indication: Infection
     Route: 042
     Dates: start: 20240701, end: 20240726
  9. LITORVAZET [Concomitant]
     Indication: Hypertension
     Route: 048
     Dates: start: 20240709
  10. K CONTIN [Concomitant]
     Indication: Prophylaxis
     Route: 048
     Dates: start: 20240717, end: 20240727
  11. TACROLIMUS [Concomitant]
     Active Substance: TACROLIMUS
     Indication: Liver transplant
     Route: 048
     Dates: start: 2024
  12. BARACLUDE [Concomitant]
     Active Substance: ENTECAVIR
     Indication: Viral hepatitis carrier
     Route: 048
     Dates: start: 20240615
  13. ZEMIGLO [Concomitant]
     Indication: Diabetes mellitus
     Route: 048
     Dates: start: 20240710
  14. NEURONTIN [Concomitant]
     Active Substance: GABAPENTIN
     Indication: Hepatocellular carcinoma
     Route: 048
     Dates: start: 20240709
  15. PRANDIN [Concomitant]
     Active Substance: REPAGLINIDE
     Indication: Liver transplant
     Route: 048
     Dates: start: 20240703
  16. JARDIANCE [Concomitant]
     Active Substance: EMPAGLIFLOZIN
     Indication: Diabetes mellitus
     Route: 048
     Dates: start: 20240710
  17. DIETARY SUPPLEMENT\HERBALS\MILK THISTLE [Concomitant]
     Active Substance: MILK THISTLE
     Indication: Viral hepatitis carrier
     Route: 048
     Dates: start: 20240709

REACTIONS (2)
  - Liver abscess [Recovered/Resolved]
  - Condition aggravated [Recovered/Resolved]

NARRATIVE: CASE EVENT DATE: 20240806
